FAERS Safety Report 25039201 (Version 1)
Quarter: 2025Q1

REPORT INFORMATION
  Report Type: Spontaneous
  Country: JP (occurrence: JP)
  Receive Date: 20250305
  Receipt Date: 20250305
  Transmission Date: 20250409
  Serious: Yes (Hospitalization)
  Sender: ALEXION PHARMACEUTICALS
  Company Number: JP-ASTRAZENECA-240120780_032620_P_1

PATIENT
  Age: 22 Year

DRUGS (1)
  1. FASENRA [Suspect]
     Active Substance: BENRALIZUMAB
     Indication: Asthma

REACTIONS (4)
  - Abdominal pain [Recovered/Resolved]
  - Asthma [Recovering/Resolving]
  - Sinusitis [Recovering/Resolving]
  - Urticaria [Recovered/Resolved]
